FAERS Safety Report 10031611 (Version 1)
Quarter: 2014Q1

REPORT INFORMATION
  Report Type: Spontaneous
  Country: US (occurrence: US)
  Receive Date: 20140324
  Receipt Date: 20140324
  Transmission Date: 20141002
  Serious: No
  Sender: FDA-Public Use
  Company Number: US-PFIZER INC-2014080986

PATIENT
  Age: 46 Year
  Sex: Female
  Weight: 124.35 kg

DRUGS (5)
  1. LYRICA [Suspect]
     Indication: SJOGREN^S SYNDROME
     Dosage: 75 MG, 2X/DAY
     Route: 048
     Dates: start: 2012, end: 2012
  2. PLAQUENIL [Concomitant]
     Dosage: 200 MG, 2X/DAY
  3. CELLCEPT [Concomitant]
     Dosage: UNK
  4. EFFEXOR [Concomitant]
     Dosage: UNK
  5. ZOLPIDEM [Concomitant]
     Dosage: UNK

REACTIONS (1)
  - Disturbance in attention [Unknown]
